FAERS Safety Report 9162760 (Version 1)
Quarter: 2013Q1

REPORT INFORMATION
  Report Type: Report from Study
  Country: US (occurrence: US)
  Receive Date: 20130314
  Receipt Date: 20130314
  Transmission Date: 20140127
  Serious: No
  Sender: FDA-Public Use
  Company Number: US-009507513-1303USA006581

PATIENT
  Age: 58 Year
  Sex: Female
  Weight: 99.77 kg

DRUGS (6)
  1. RIBAVIRIN [Suspect]
     Indication: CHRONIC HEPATITIS C
     Dosage: 1200MG PER DAY, DIVIDED DOSE- 2 200MG TABLETS 3 TIMES A DAY
     Dates: start: 20120213
  2. RIBAVIRIN [Suspect]
     Dosage: 600 MG, QD
     Dates: start: 20120515
  3. RIBAVIRIN [Suspect]
     Dosage: 800 MG, QD
     Dates: start: 2012
  4. RIBAVIRIN [Suspect]
     Dosage: 400 MG, QD
     Dates: start: 201208, end: 20120820
  5. PEGINTERFERON ALFA-2A [Suspect]
     Indication: CHRONIC HEPATITIS C
     Dosage: 180 MICROGRAM, QW
     Route: 058
     Dates: start: 20120213, end: 20120820
  6. BOCEPREVIR [Suspect]
     Indication: HEPATITIS C
     Dosage: 800 MG, TID
     Route: 048
     Dates: start: 20120313

REACTIONS (20)
  - Blood bilirubin increased [Unknown]
  - Influenza like illness [Unknown]
  - Chromaturia [Unknown]
  - Nausea [Unknown]
  - Insomnia [Unknown]
  - Arthralgia [Unknown]
  - Constipation [Unknown]
  - Dyspnoea exertional [Unknown]
  - Dizziness [Unknown]
  - Palpitations [Unknown]
  - Pruritus [Unknown]
  - Full blood count decreased [Unknown]
  - Diarrhoea [Unknown]
  - Diarrhoea [Unknown]
  - Blood calcium decreased [Unknown]
  - Abdominal pain upper [Unknown]
  - Balance disorder [Unknown]
  - Dizziness [Unknown]
  - Syncope [Unknown]
  - Haemoglobin decreased [Unknown]
